FAERS Safety Report 23093058 (Version 1)
Quarter: 2023Q4

REPORT INFORMATION
  Report Type: Report from Study
  Country: CA (occurrence: CA)
  Receive Date: 20231021
  Receipt Date: 20231021
  Transmission Date: 20240109
  Serious: Yes (Other)
  Sender: FDA-Public Use
  Company Number: CA-TEVA-2023-CA-2937992

PATIENT
  Age: 26 Year
  Sex: Female

DRUGS (1)
  1. AJOVY [Suspect]
     Active Substance: FREMANEZUMAB-VFRM
     Indication: Migraine prophylaxis
     Route: 058
     Dates: start: 202307

REACTIONS (8)
  - Injection site hypersensitivity [Unknown]
  - Injection site induration [Unknown]
  - Injection site swelling [Recovering/Resolving]
  - Sensory loss [Unknown]
  - Gait disturbance [Unknown]
  - Swollen tongue [Unknown]
  - Injection site urticaria [Unknown]
  - Pain in extremity [Unknown]

NARRATIVE: CASE EVENT DATE: 20230101
